FAERS Safety Report 15429458 (Version 2)
Quarter: 2018Q4

REPORT INFORMATION
  Report Type: Spontaneous
  Country: FI (occurrence: FI)
  Receive Date: 20180926
  Receipt Date: 20181206
  Transmission Date: 20190204
  Serious: Yes (Death, Hospitalization, Other)
  Sender: FDA-Public Use
  Company Number: FI-BAYER-2018-155718

PATIENT
  Sex: Male

DRUGS (11)
  1. PEGORION [Concomitant]
     Active Substance: POLYETHYLENE GLYCOL 4000
  2. PRIMPERAN [Concomitant]
     Active Substance: METOCLOPRAMIDE HYDROCHLORIDE
  3. TEMESTA [ASTEMIZOLE] [Concomitant]
  4. CARDACE [RAMIPRIL] [Concomitant]
  5. XOFIGO [Suspect]
     Active Substance: RADIUM RA-223 DICHLORIDE
     Indication: METASTASES TO BONE
  6. PARACETAMOL [Concomitant]
     Active Substance: ACETAMINOPHEN
  7. KALCIPOS-D [Concomitant]
     Active Substance: CALCIUM CARBONATE\CHOLECALCIFEROL
  8. CIPRALEX [Concomitant]
     Active Substance: ESCITALOPRAM OXALATE
  9. XOFIGO [Suspect]
     Active Substance: RADIUM RA-223 DICHLORIDE
     Indication: PROSTATE CANCER
     Dosage: UNK
     Dates: start: 20180202
  10. ELIGARD [Concomitant]
     Active Substance: LEUPROLIDE ACETATE
  11. DUROGESIC [Concomitant]
     Active Substance: FENTANYL

REACTIONS (4)
  - Prostatic specific antigen increased [None]
  - Diarrhoea [Recovered/Resolved]
  - Death [Fatal]
  - Prostate cancer [None]

NARRATIVE: CASE EVENT DATE: 20180206
